FAERS Safety Report 4612315-2 (Version None)
Quarter: 2005Q1

REPORT INFORMATION
  Report Type: 
  Country: None (occurrence: None)
  Receive Date: 20050308
  Receipt Date: 20050103
  Transmission Date: 20050727
  Serious: Yes (Hospitalization)
  Sender: FDA-Public Use
  Company Number: 2004UW24687

PATIENT
  Age: 47 Year
  Sex: Female
  Weight: 69.8539 kg

DRUGS (4)
  1. CRESTOR [Suspect]
     Indication: DYSLIPIDAEMIA
     Dates: start: 20041119, end: 20041121
  2. PREVACID [Concomitant]
  3. ESTRACE [Concomitant]
  4. LIPITOR [Concomitant]

REACTIONS (1)
  - CHEST PAIN [None]
